FAERS Safety Report 5417892-X (Version None)
Quarter: 2007Q3

REPORT INFORMATION
  Report Type: 
  Country: None (occurrence: None)
  Receive Date: 20070815
  Receipt Date: 20070807
  Transmission Date: 20080115
  Serious: Yes (Hospitalization)
  Sender: FDA-Public Use
  Company Number: 2007BI012985

PATIENT
  Sex: Male

DRUGS (2)
  1. ZEVALIN [Suspect]
     Indication: DRUG USE FOR UNKNOWN INDICATION
     Dosage: 4.73 MCI; 1X; IV
     Route: 042
     Dates: start: 20070612, end: 20070612
  2. RITUXAN [Concomitant]

REACTIONS (2)
  - CARDIAC DISORDER [None]
  - URINARY TRACT INFECTION [None]
